FAERS Safety Report 10167613 (Version 2)
Quarter: 2014Q2

REPORT INFORMATION
  Report Type: Spontaneous
  Country: CN (occurrence: CN)
  Receive Date: 20140512
  Receipt Date: 20140512
  Transmission Date: 20141212
  Serious: Yes (Death)
  Sender: FDA-Public Use
  Company Number: CN-ASTELLAS-2014JP002899

PATIENT
  Age: 64 Year
  Sex: Male

DRUGS (6)
  1. MYCAMINE [Suspect]
     Indication: FUNGAL INFECTION
     Route: 042
     Dates: start: 20140322, end: 20140325
  2. MYCAMINE [Suspect]
     Dosage: UNK UNK, UNKNOWN FREQ.
     Route: 065
  3. IMMUNE GLOBULIN [Concomitant]
     Indication: IMMUNOGLOBULINS DECREASED
     Dosage: UNK UNK, UNKNOWN FREQ.
     Route: 065
  4. MUCOSOLVAN [Concomitant]
     Indication: BACTERIAL INFECTION
     Dosage: UNK, UNKNOWN FREQ.
     Route: 065
  5. SULPERAZONE [Concomitant]
     Indication: BACTERIAL INFECTION
     Dosage: UNK, UNKNOWN FREQ.
     Route: 065
  6. ACICLOVIR [Concomitant]
     Indication: ANTIVIRAL TREATMENT
     Dosage: UNK, UNKNOWN FREQ.
     Route: 065

REACTIONS (2)
  - Death [Fatal]
  - Granulocytopenia [Not Recovered/Not Resolved]
